FAERS Safety Report 9457602 (Version 1)
Quarter: 2013Q3

REPORT INFORMATION
  Report Type: Spontaneous
  Country: US (occurrence: None)
  Receive Date: 20130809
  Receipt Date: 20130809
  Transmission Date: 20140515
  Serious: Yes (Other)
  Sender: FDA-Public Use
  Company Number: 2013-002486

PATIENT
  Sex: Female

DRUGS (1)
  1. LOESTRIN 24 FE (NORETHINDRONE ACETATE, ETHINYLESTRADIOL, FERROUS FUMARATE) [Suspect]
     Route: 048

REACTIONS (1)
  - Suicidal ideation [None]
